FAERS Safety Report 8631475 (Version 2)
Quarter: 2013Q3

REPORT INFORMATION
  Report Type: Spontaneous
  Country: US (occurrence: US)
  Receive Date: 20120622
  Receipt Date: 20130715
  Transmission Date: 20140515
  Serious: Yes (Hospitalization)
  Sender: FDA-Public Use
  Company Number: US-RB-041532-12

PATIENT
  Age: 40 Year
  Sex: Male

DRUGS (9)
  1. SUBOXONE FILM [Suspect]
     Indication: DRUG DEPENDENCE
     Dosage: SUBOXONE FILM; DOSING DETAILS UNKNOWN; DAILY
     Route: 060
     Dates: end: 201212
  2. SUBOXONE FILM [Suspect]
     Dosage: SUBOXONE FILM; TAKING 4 MG ONCE OR TWICE DAILY
     Route: 060
     Dates: start: 20130704
  3. SUBOXONE TABLET [Suspect]
     Dosage: DOSING DETAILS UNKNOWN
     Route: 065
  4. SUBOXONE TABLET [Suspect]
     Indication: DRUG DEPENDENCE
     Dosage: TOOK PIECES OF A TABLET DURING THE DAY
     Route: 065
     Dates: start: 20120613
  5. HYDROCODONE [Suspect]
     Indication: PRODUCT USED FOR UNKNOWN INDICATION
     Dosage: DOSING DETAILS UNKNOWN
     Route: 065
  6. OXYCODONE [Suspect]
     Indication: PRODUCT USED FOR UNKNOWN INDICATION
     Dosage: DOSING DETAILS UNKNOWN
     Route: 065
  7. ALPRAZOLAM [Concomitant]
     Indication: PRODUCT USED FOR UNKNOWN INDICATION
     Route: 060
  8. NORCO [Concomitant]
     Indication: BACK PAIN
     Dosage: DOSING DETAILS UNKNOWN
     Route: 048
     Dates: end: 20130704
  9. BACLOFEN [Concomitant]
     Indication: BACK PAIN
     Dosage: DOSING DETAILS UNKNOWN
     Route: 048

REACTIONS (13)
  - Wrong technique in drug usage process [Not Recovered/Not Resolved]
  - Underdose [Recovered/Resolved]
  - Nausea [Not Recovered/Not Resolved]
  - Dyspnoea [Not Recovered/Not Resolved]
  - Influenza [Not Recovered/Not Resolved]
  - Drug withdrawal syndrome [Not Recovered/Not Resolved]
  - Dizziness [Not Recovered/Not Resolved]
  - Pain [Not Recovered/Not Resolved]
  - Hyperhidrosis [Not Recovered/Not Resolved]
  - Vomiting [Unknown]
  - Haematemesis [Unknown]
  - Substance abuse [Not Recovered/Not Resolved]
  - Therapeutic response unexpected [Not Recovered/Not Resolved]
